FAERS Safety Report 7022949-6 (Version None)
Quarter: 2010Q3

REPORT INFORMATION
  Report Type: 
  Country: None (occurrence: None)
  Receive Date: 20100930
  Receipt Date: 20100921
  Transmission Date: 20110219
  Serious: Yes (Other)
  Sender: FDA-Public Use
  Company Number: US-PFIZER INC-2010120477

PATIENT
  Sex: Female

DRUGS (1)
  1. ALDACTONE [Suspect]
     Dosage: 100 MG, 1XDAY

REACTIONS (5)
  - ALOPECIA [None]
  - AMENORRHOEA [None]
  - ANXIETY [None]
  - DEPRESSION [None]
  - HYPOTHALAMO-PITUITARY DISORDER [None]
